FAERS Safety Report 7132223-5 (Version None)
Quarter: 2010Q4

REPORT INFORMATION
  Report Type: 
  Country: None (occurrence: None)
  Receive Date: 20101202
  Receipt Date: 20101127
  Transmission Date: 20110411
  Serious: Yes (Hospitalization)
  Sender: FDA-Public Use
  Company Number: DE-BRISTOL-MYERS SQUIBB COMPANY-15411820

PATIENT
  Age: 13 Year
  Sex: Female

DRUGS (1)
  1. ABILIFY [Suspect]
     Indication: SCHIZOPHRENIA, DISORGANISED TYPE
     Dosage: DOSE INCREASED TO 30MG

REACTIONS (1)
  - PSYCHOTIC DISORDER [None]
